FAERS Safety Report 6507991-3 (Version None)
Quarter: 2009Q4

REPORT INFORMATION
  Report Type: 
  Country: None (occurrence: None)
  Receive Date: 20091221
  Receipt Date: 20091218
  Transmission Date: 20100525
  Serious: Yes (Hospitalization)
  Sender: FDA-Public Use
  Company Number: PHHO2007IT11911

PATIENT
  Sex: Female
  Weight: 58.1 kg

DRUGS (7)
  1. PURSENNID (NCH) [Suspect]
  2. PLACEBO PLACEBO [Suspect]
     Dosage: LEVEL 1
     Route: 048
     Dates: start: 20020703
  3. PLACEBO PLACEBO [Suspect]
     Dosage: LEVEL 2
     Route: 048
     Dates: end: 20070709
  4. PLACEBO PLACEBO [Suspect]
     Dosage: NO TREATMENT
     Dates: start: 20070709, end: 20070712
  5. DIOVAN T30230+CAPS [Suspect]
     Indication: CARDIOVASCULAR DISORDER
     Dosage: LEVEL 1
     Route: 048
     Dates: start: 20020703
  6. DIOVAN T30230+CAPS [Suspect]
     Dosage: LEVEL 2
     Route: 048
     Dates: end: 20070709
  7. DIOVAN T30230+CAPS [Suspect]
     Dosage: NO TREATMENT
     Dates: start: 20070709, end: 20070712

REACTIONS (5)
  - CHILLS [None]
  - HYPERHIDROSIS [None]
  - HYPERTENSION [None]
  - PRESYNCOPE [None]
  - VOMITING [None]
